FAERS Safety Report 8766081 (Version 4)
Quarter: 2013Q4

REPORT INFORMATION
  Report Type: Spontaneous
  Country: US (occurrence: US)
  Receive Date: 20120914
  Receipt Date: 20131011
  Transmission Date: 20140711
  Serious: Yes (Hospitalization, Other)
  Sender: FDA-Public Use
  Company Number: US-009507513-1208USA011025

PATIENT
  Sex: Female
  Weight: 65.7 kg

DRUGS (3)
  1. FOSAMAX [Suspect]
     Indication: OSTEOPOROSIS
     Dosage: 70 MG, QW
     Route: 048
     Dates: start: 20021004
  2. CALCIUM (UNSPECIFIED) [Concomitant]
     Indication: OSTEOPOROSIS
  3. VITAMIN D (UNSPECIFIED) [Concomitant]
     Indication: OSTEOPOROSIS

REACTIONS (29)
  - Femur fracture [Recovered/Resolved]
  - Intramedullary rod insertion [Recovered/Resolved]
  - Removal of internal fixation [Unknown]
  - Arthrotomy [Unknown]
  - Shoulder arthroplasty [Unknown]
  - Low turnover osteopathy [Unknown]
  - Patella fracture [Unknown]
  - Limb crushing injury [Unknown]
  - Medical device pain [Unknown]
  - Thermal burn [Unknown]
  - Excoriation [Unknown]
  - Arthritis [Unknown]
  - Essential hypertension [Unknown]
  - Hypercholesterolaemia [Unknown]
  - Osteoarthritis [Unknown]
  - Glaucoma [Unknown]
  - Glaucoma surgery [Unknown]
  - Deep vein thrombosis [Unknown]
  - Wrist fracture [Unknown]
  - Kyphosis [Unknown]
  - Cataract operation [Unknown]
  - Haematoma [Unknown]
  - Macular degeneration [Unknown]
  - Stent placement [Unknown]
  - Inappropriate schedule of drug administration [Unknown]
  - Cataract [Unknown]
  - Gastrooesophageal reflux disease [Unknown]
  - Drug ineffective [Unknown]
  - Drug hypersensitivity [Unknown]
